FAERS Safety Report 25751467 (Version 1)
Quarter: 2025Q3

REPORT INFORMATION
  Report Type: Other
  Country: PE (occurrence: PE)
  Receive Date: 20250902
  Receipt Date: 20250902
  Transmission Date: 20251021
  Serious: Yes (Hospitalization, Other)
  Sender: Kanchan Healthcare
  Company Number: PE-Kanchan Healthcare INC-2183654

PATIENT
  Age: 24 Year
  Sex: Female

DRUGS (4)
  1. ETHAMBUTOL HYDROCHLORIDE [Suspect]
     Active Substance: ETHAMBUTOL HYDROCHLORIDE
     Indication: Pulmonary tuberculosis
     Dates: start: 202305, end: 202306
  2. RIFAMPIN [Suspect]
     Active Substance: RIFAMPIN
     Dates: start: 202305, end: 202306
  3. ISONIAZID [Suspect]
     Active Substance: ISONIAZID
     Dates: start: 202305, end: 202306
  4. PYRAZINAMIDE [Suspect]
     Active Substance: PYRAZINAMIDE
     Dates: start: 202305, end: 202306

REACTIONS (6)
  - Stevens-Johnson syndrome [Recovered/Resolved]
  - Drug reaction with eosinophilia and systemic symptoms [Recovered/Resolved]
  - Alopecia [Recovered/Resolved]
  - Respiratory failure [Recovered/Resolved]
  - Renal failure [Recovered/Resolved]
  - Hepatic failure [Recovered/Resolved]

NARRATIVE: CASE EVENT DATE: 20230101
